FAERS Safety Report 11815322 (Version 2)
Quarter: 2016Q1

REPORT INFORMATION
  Report Type: Spontaneous
  Country: US (occurrence: US)
  Receive Date: 20151209
  Receipt Date: 20160121
  Transmission Date: 20160525
  Serious: Yes (Death)
  Sender: FDA-Public Use
  Company Number: US-CELGENE-USA-2015121111

PATIENT
  Age: 68 Year
  Sex: Male

DRUGS (1)
  1. ABRAXANE [Suspect]
     Active Substance: PACLITAXEL
     Indication: MALIGNANT NEOPLASM OF AMPULLA OF VATER
     Route: 041
     Dates: start: 20150409, end: 20150423

REACTIONS (1)
  - Malignant neoplasm of ampulla of Vater [Fatal]

NARRATIVE: CASE EVENT DATE: 20150713
